FAERS Safety Report 4351209-7 (Version None)
Quarter: 2004Q2

REPORT INFORMATION
  Report Type: 
  Country: None (occurrence: None)
  Receive Date: 20040430
  Receipt Date: 20040430
  Transmission Date: 20050107
  Serious: Yes (Hospitalization)
  Sender: FDA-Public Use
  Company Number: None

PATIENT
  Age: 3 Year
  Sex: Male
  Weight: 15.5 kg

DRUGS (1)
  1. ABILIFY [Suspect]
     Indication: ACCIDENTAL EXPOSURE
     Dosage: 1 DOSE OF ~7.5 MG PO
     Route: 048
     Dates: start: 20040329

REACTIONS (3)
  - ACCIDENTAL EXPOSURE [None]
  - EXTRAPYRAMIDAL DISORDER [None]
  - MEDICATION ERROR [None]
